FAERS Safety Report 6914233-3 (Version None)
Quarter: 2010Q3

REPORT INFORMATION
  Report Type: 
  Country: None (occurrence: None)
  Receive Date: 20100809
  Receipt Date: 20100730
  Transmission Date: 20110219
  Serious: Yes (Hospitalization)
  Sender: FDA-Public Use
  Company Number: A0866593A

PATIENT
  Sex: Male
  Weight: 82.3 kg

DRUGS (1)
  1. AVANDIA [Suspect]
     Indication: DIABETES MELLITUS
     Dosage: 4MG PER DAY
     Route: 048

REACTIONS (6)
  - CARDIAC FAILURE CONGESTIVE [None]
  - HAND FRACTURE [None]
  - MYOCARDIAL INFARCTION [None]
  - PRESYNCOPE [None]
  - PULMONARY HYPERTENSION [None]
  - SPINAL COMPRESSION FRACTURE [None]
